FAERS Safety Report 16765247 (Version 2)
Quarter: 2019Q3

REPORT INFORMATION
  Report Type: Report from Study
  Country: CA (occurrence: CA)
  Receive Date: 20190903
  Receipt Date: 20190912
  Transmission Date: 20191005
  Serious: Yes (Other)
  Sender: FDA-Public Use
  Company Number: CA-SA-2019SA244109

PATIENT
  Age: 56 Year
  Sex: Female
  Weight: 64 kg

DRUGS (13)
  1. PRAVASTATIN SODIUM. [Suspect]
     Active Substance: PRAVASTATIN SODIUM
     Dosage: 80 MG, UNK
     Route: 065
  2. ALIROCUMAB [Suspect]
     Active Substance: ALIROCUMAB
     Indication: TYPE IIA HYPERLIPIDAEMIA
     Dosage: 150 MG, QOW
     Route: 058
     Dates: start: 20160308
  3. ATORVASTATIN [Suspect]
     Active Substance: ATORVASTATIN
     Dosage: 10 MG, QD
     Route: 065
  4. PRAVASTATIN SODIUM. [Suspect]
     Active Substance: PRAVASTATIN SODIUM
     Dosage: 40 MG, UNK
     Route: 065
  5. PRAVASTATIN SODIUM. [Suspect]
     Active Substance: PRAVASTATIN SODIUM
     Dosage: 10 MG, UNK
     Route: 065
  6. EZETROL [Concomitant]
     Active Substance: EZETIMIBE
     Dosage: UNK UNK, UNK
     Route: 065
  7. REPATHA [Concomitant]
     Active Substance: EVOLOCUMAB
     Dosage: UNK
     Route: 065
  8. COLESEVELAM HYDROCHLORIDE. [Suspect]
     Active Substance: COLESEVELAM HYDROCHLORIDE
     Indication: MYALGIA
     Dosage: 2 DF, TID
     Route: 065
     Dates: start: 201608, end: 201708
  9. COLESEVELAM HYDROCHLORIDE. [Suspect]
     Active Substance: COLESEVELAM HYDROCHLORIDE
     Indication: TYPE IIA HYPERLIPIDAEMIA
  10. PRAVASTATIN SODIUM. [Suspect]
     Active Substance: PRAVASTATIN SODIUM
     Dosage: 10 MG, UNK
     Route: 065
     Dates: start: 201602
  11. PRAVASTATIN SODIUM. [Suspect]
     Active Substance: PRAVASTATIN SODIUM
     Dosage: 20 MG, UNK
     Route: 065
  12. ROSUVASTATIN. [Concomitant]
     Active Substance: ROSUVASTATIN
     Dosage: UNK UNK, UNK
     Route: 065
  13. SYNTHROID [Concomitant]
     Active Substance: LEVOTHYROXINE SODIUM
     Dosage: 100 MG, UNK
     Route: 065

REACTIONS (6)
  - Lipids increased [Unknown]
  - Basedow^s disease [Recovered/Resolved]
  - Therapeutic response decreased [Unknown]
  - Abdominal discomfort [Unknown]
  - Myalgia [Recovered/Resolved]
  - Hypothyroidism [Unknown]

NARRATIVE: CASE EVENT DATE: 2018
